FAERS Safety Report 10538102 (Version 1)
Quarter: 2014Q4

REPORT INFORMATION
  Report Type: Spontaneous
  Country: CH (occurrence: CH)
  Receive Date: 20141023
  Receipt Date: 20141023
  Transmission Date: 20150529
  Serious: Yes (Hospitalization)
  Sender: FDA-Public Use
  Company Number: CH-PFIZER INC-2014284645

PATIENT
  Age: 22 Year
  Sex: Male

DRUGS (23)
  1. PHENYTOIN. [Interacting]
     Active Substance: PHENYTOIN
     Dosage: 300 MG, UNK
  2. PHENYTOIN. [Interacting]
     Active Substance: PHENYTOIN
     Dosage: 350 MG, UNK
     Route: 042
  3. PHENYTOIN. [Interacting]
     Active Substance: PHENYTOIN
     Dosage: 1600 MG, ON DAY 15
     Route: 040
  4. RETIGABINE [Concomitant]
     Active Substance: EZOGABINE
     Indication: EPILEPSY
     Dosage: 1200 MG, UNK
  5. PHENYTOIN. [Interacting]
     Active Substance: PHENYTOIN
     Dosage: 300 MG, UNK
  6. PHENYTOIN. [Interacting]
     Active Substance: PHENYTOIN
     Dosage: 250 MG, UNK
  7. PHENYTOIN. [Interacting]
     Active Substance: PHENYTOIN
     Dosage: 250 MG, UNK
  8. PHENYTOIN. [Interacting]
     Active Substance: PHENYTOIN
     Dosage: 300 MG, UNK
  9. PERAMPANEL [Interacting]
     Active Substance: PERAMPANEL
     Dosage: 14 MG, UNK
  10. PERAMPANEL [Interacting]
     Active Substance: PERAMPANEL
     Dosage: 14 MG, UNK
  11. PERAMPANEL [Interacting]
     Active Substance: PERAMPANEL
     Dosage: 8 MG, UNK
  12. CLONAZEPAM. [Concomitant]
     Active Substance: CLONAZEPAM
     Indication: EPILEPSY
     Dosage: 4 MG, UNK
  13. CLONAZEPAM. [Concomitant]
     Active Substance: CLONAZEPAM
     Dosage: 6 MG, DAILY
  14. PHENYTOIN. [Suspect]
     Active Substance: PHENYTOIN
     Indication: EPILEPSY
     Dosage: 150 MG, UNK
  15. PERAMPANEL [Interacting]
     Active Substance: PERAMPANEL
     Dosage: 14 MG, UNK
  16. OXCARBAZEPINE. [Concomitant]
     Active Substance: OXCARBAZEPINE
     Indication: EPILEPSY
     Dosage: 1800 MG, DAILY
  17. PHENYTOIN. [Interacting]
     Active Substance: PHENYTOIN
     Dosage: 250 MG, UNK
  18. PHENYTOIN. [Interacting]
     Active Substance: PHENYTOIN
     Dosage: 300 MG, UNK
  19. PHENYTOIN. [Interacting]
     Active Substance: PHENYTOIN
     Dosage: 1000 MG, ON DAY 19
     Route: 040
  20. PERAMPANEL [Interacting]
     Active Substance: PERAMPANEL
     Dosage: 14 MG, UNK
  21. PHENYTOIN. [Interacting]
     Active Substance: PHENYTOIN
     Dosage: 300 MG, UNK
  22. PERAMPANEL [Interacting]
     Active Substance: PERAMPANEL
     Indication: EPILEPSY
     Dosage: 2 MG, DAILY
  23. PERAMPANEL [Interacting]
     Active Substance: PERAMPANEL
     Dosage: 4 MG, DAILY

REACTIONS (2)
  - Drug interaction [Unknown]
  - Anticonvulsant drug level decreased [Recovered/Resolved]
